FAERS Safety Report 16461691 (Version 1)
Quarter: 2019Q2

REPORT INFORMATION
  Report Type: Report from Study
  Country: US (occurrence: US)
  Receive Date: 20190621
  Receipt Date: 20190621
  Transmission Date: 20190711
  Serious: Yes (Other)
  Sender: FDA-Public Use
  Company Number: US-ROCHE-2335772

PATIENT
  Sex: Female
  Weight: 72.19 kg

DRUGS (3)
  1. LEVOTHYROXINE. [Concomitant]
     Active Substance: LEVOTHYROXINE
     Route: 065
  2. OCREVUS [Suspect]
     Active Substance: OCRELIZUMAB
     Indication: PRIMARY PROGRESSIVE MULTIPLE SCLEROSIS
     Dosage: SUBSEQUENT DOSES ON: 26/MAR/2018, 10/SEP/2018, 27/FEB/2019
     Route: 065
  3. IPRATROPIUM [Concomitant]
     Active Substance: IPRATROPIUM

REACTIONS (5)
  - Headache [Recovered/Resolved]
  - Heart rate increased [Recovered/Resolved]
  - Upper respiratory tract infection [Not Recovered/Not Resolved]
  - Dizziness [Unknown]
  - Pain [Unknown]
